FAERS Safety Report 15109757 (Version 1)
Quarter: 2018Q3

REPORT INFORMATION
  Report Type: Spontaneous
  Country: JP (occurrence: JP)
  Receive Date: 20180705
  Receipt Date: 20180705
  Transmission Date: 20181010
  Serious: Yes (Death, Hospitalization)
  Sender: FDA-Public Use
  Company Number: JP-CLINIGEN GROUP PLC/ CLINIGEN HEALTHCARE LTD-JP-CLGN-18-00265

PATIENT
  Age: 40 Year
  Sex: Male
  Weight: 62 kg

DRUGS (3)
  1. FOSCAVIR [Suspect]
     Active Substance: FOSCARNET SODIUM
     Indication: ENCEPHALITIS VIRAL
     Route: 041
     Dates: start: 20160112, end: 20160123
  2. CYCLOPHOSPHAMIDE. [Concomitant]
     Active Substance: CYCLOPHOSPHAMIDE
     Indication: BONE MARROW CONDITIONING REGIMEN
  3. FOSCAVIR [Suspect]
     Active Substance: FOSCARNET SODIUM
     Indication: HUMAN HERPESVIRUS 6 INFECTION

REACTIONS (5)
  - Condition aggravated [Fatal]
  - Venoocclusive disease [Fatal]
  - Off label use [Unknown]
  - Thrombotic microangiopathy [Fatal]
  - Ileus paralytic [Fatal]
